FAERS Safety Report 8304660-4 (Version None)
Quarter: 2012Q2

REPORT INFORMATION
  Report Type: 
  Country: None (occurrence: None)
  Receive Date: 20120423
  Receipt Date: 20120418
  Transmission Date: 20120825
  Serious: Yes (Death)
  Sender: FDA-Public Use
  Company Number: PHHY2012AR033209

PATIENT
  Sex: Male

DRUGS (1)
  1. ONBREZ [Suspect]
     Indication: LUNG DISORDER
     Dosage: 150 UG, UNK

REACTIONS (1)
  - RESPIRATORY ARREST [None]
